FAERS Safety Report 9574571 (Version 2)
Quarter: 2013Q4

REPORT INFORMATION
  Report Type: Spontaneous
  Country: US (occurrence: US)
  Receive Date: 20131001
  Receipt Date: 20131001
  Transmission Date: 20140711
  Serious: No
  Sender: FDA-Public Use
  Company Number: US-PURDUE-USA-2012-0083287

PATIENT
  Sex: Male

DRUGS (1)
  1. BUTRANS [Suspect]
     Indication: PRODUCT USED FOR UNKNOWN INDICATION
     Dosage: 20 MCG/HR, UNK
     Route: 062
     Dates: start: 20110209, end: 20111128

REACTIONS (5)
  - Drug withdrawal syndrome [Unknown]
  - Pain [Unknown]
  - Application site rash [Unknown]
  - Application site erythema [Unknown]
  - Application site pruritus [Unknown]
